FAERS Safety Report 9718936 (Version 1)
Quarter: 2013Q4

REPORT INFORMATION
  Report Type: Spontaneous
  Country: IT (occurrence: IT)
  Receive Date: 20131127
  Receipt Date: 20131127
  Transmission Date: 20140711
  Serious: Yes (Life-Threatening)
  Sender: FDA-Public Use
  Company Number: IT-BAYER-2013-144962

PATIENT
  Sex: Female
  Weight: 61 kg

DRUGS (1)
  1. ASPIRINA [Suspect]
     Indication: HEADACHE
     Dosage: 1 DF, ONCE
     Route: 048

REACTIONS (2)
  - Abdominal pain upper [Recovering/Resolving]
  - Dizziness [Recovering/Resolving]
